FAERS Safety Report 8180828-5 (Version None)
Quarter: 2012Q1

REPORT INFORMATION
  Report Type: 
  Country: None (occurrence: None)
  Receive Date: 20120302
  Receipt Date: 20111116
  Transmission Date: 20120608
  Serious: Yes (Other)
  Sender: FDA-Public Use
  Company Number: US-ROCHE-1044902

PATIENT

DRUGS (2)
  1. TEMOZOLOMIDE [Suspect]
     Indication: GLIOBLASTOMA
     Route: 065
  2. AVASTIN [Suspect]
     Indication: GLIOBLASTOMA

REACTIONS (4)
  - PULMONARY EMBOLISM [None]
  - WOUND INFECTION [None]
  - RENAL FAILURE [None]
  - COLITIS [None]
